FAERS Safety Report 5656008-1 (Version None)
Quarter: 2008Q1

REPORT INFORMATION
  Report Type: 
  Country: None (occurrence: None)
  Receive Date: 20080307
  Receipt Date: 20080225
  Transmission Date: 20080703
  Serious: Yes (Other)
  Sender: FDA-Public Use
  Company Number: US-PFIZER INC-2008018689

PATIENT
  Sex: Male

DRUGS (9)
  1. CHANTIX [Suspect]
     Indication: SMOKING CESSATION THERAPY
  2. INSULIN [Concomitant]
  3. INSULIN [Concomitant]
  4. ANTIHYPERTENSIVES [Concomitant]
  5. ANTIHYPERTENSIVES [Concomitant]
  6. CHOLESTEROL [Concomitant]
  7. CHOLESTEROL [Concomitant]
  8. ALL OTHER THERAPEUTIC PRODUCTS [Concomitant]
     Route: 055
  9. ALL OTHER THERAPEUTIC PRODUCTS [Concomitant]

REACTIONS (1)
  - CONVULSION [None]
